FAERS Safety Report 25210176 (Version 4)
Quarter: 2025Q2

REPORT INFORMATION
  Report Type: Report from Study
  Country: US (occurrence: US)
  Receive Date: 20250417
  Receipt Date: 20250515
  Transmission Date: 20250716
  Serious: Yes (Hospitalization, Other)
  Sender: SANDOZ
  Company Number: US-SANDOZ-SDZ2023US067189

PATIENT
  Sex: Female
  Weight: 57.596 kg

DRUGS (26)
  1. TREPROSTINIL [Suspect]
     Active Substance: TREPROSTINIL
     Route: 042
  2. TREPROSTINIL [Suspect]
     Active Substance: TREPROSTINIL
     Route: 042
  3. TREPROSTINIL [Suspect]
     Active Substance: TREPROSTINIL
     Indication: Pulmonary arterial hypertension
     Route: 042
     Dates: start: 20231016
  4. TREPROSTINIL [Suspect]
     Active Substance: TREPROSTINIL
     Route: 042
     Dates: start: 20231016
  5. ALBUTEROL SULFATE [Concomitant]
     Active Substance: ALBUTEROL SULFATE
     Indication: Product used for unknown indication
     Route: 065
  6. ALEVE [Concomitant]
     Active Substance: NAPROXEN SODIUM
     Indication: Product used for unknown indication
     Route: 065
  7. ASPIRIN [Concomitant]
     Active Substance: ASPIRIN
     Indication: Product used for unknown indication
     Route: 065
  8. COSOPT [Concomitant]
     Active Substance: DORZOLAMIDE HYDROCHLORIDE\TIMOLOL MALEATE
     Indication: Product used for unknown indication
     Route: 065
  9. FLUTICASONE PROPIONATE [Concomitant]
     Active Substance: FLUTICASONE PROPIONATE
     Indication: Product used for unknown indication
     Route: 065
  10. GABAPENTIN [Concomitant]
     Active Substance: GABAPENTIN
     Indication: Product used for unknown indication
     Route: 065
  11. HYDROCHLOROTHIAZIDE\LOSARTAN [Concomitant]
     Active Substance: HYDROCHLOROTHIAZIDE\LOSARTAN
     Indication: Product used for unknown indication
     Route: 065
  12. INSULIN GLARGINE [Concomitant]
     Active Substance: INSULIN GLARGINE
     Indication: Product used for unknown indication
     Route: 065
  13. INSULIN LISPRO JUNIOR KWIKPEN [Concomitant]
     Active Substance: INSULIN LISPRO
     Indication: Product used for unknown indication
     Route: 065
  14. METFORMIN HYDROCHLORIDE [Concomitant]
     Active Substance: METFORMIN HYDROCHLORIDE
     Indication: Product used for unknown indication
     Route: 065
  15. MYCOPHENOLATE MOFETIL [Concomitant]
     Active Substance: MYCOPHENOLATE MOFETIL
     Indication: Product used for unknown indication
     Route: 065
  16. ONDANSETRON [Concomitant]
     Active Substance: ONDANSETRON
     Indication: Product used for unknown indication
     Route: 065
  17. MACITENTAN\TADALAFIL [Concomitant]
     Active Substance: MACITENTAN\TADALAFIL
     Indication: Product used for unknown indication
     Route: 065
  18. OXYGEN [Concomitant]
     Active Substance: OXYGEN
     Indication: Product used for unknown indication
     Route: 065
  19. PEPCID [Concomitant]
     Active Substance: FAMOTIDINE
     Indication: Product used for unknown indication
     Route: 065
  20. PREDNISONE [Concomitant]
     Active Substance: PREDNISONE
     Indication: Product used for unknown indication
     Route: 065
  21. SERTRALINE HYDROCHLORIDE [Concomitant]
     Active Substance: SERTRALINE HYDROCHLORIDE
     Indication: Product used for unknown indication
     Route: 065
  22. SIMVASTATIN [Concomitant]
     Active Substance: SIMVASTATIN
     Indication: Product used for unknown indication
     Route: 065
  23. SODIUM CHLORIDE [Concomitant]
     Active Substance: SODIUM CHLORIDE
     Indication: Product used for unknown indication
     Route: 065
  24. TORSEMIDE [Concomitant]
     Active Substance: TORSEMIDE
     Indication: Product used for unknown indication
     Route: 065
  25. TRAZODONE HCL [Concomitant]
     Active Substance: TRAZODONE HYDROCHLORIDE
     Indication: Product used for unknown indication
     Route: 065
  26. TREPROSTINIL [Concomitant]
     Active Substance: TREPROSTINIL
     Indication: Product used for unknown indication
     Route: 065

REACTIONS (11)
  - Dyspnoea exertional [Unknown]
  - Palpitations [Unknown]
  - Fatigue [Unknown]
  - Vomiting [Unknown]
  - Back pain [Unknown]
  - Diarrhoea [Unknown]
  - Dyspnoea [Unknown]
  - Syncope [Unknown]
  - Dehydration [Unknown]
  - Adverse event [Unknown]
  - Visual impairment [Unknown]
